FAERS Safety Report 4961732-X (Version None)
Quarter: 2006Q1

REPORT INFORMATION
  Report Type: 
  Country: None (occurrence: None)
  Receive Date: 20060329
  Receipt Date: 20060327
  Transmission Date: 20060701
  Serious: Yes (Other)
  Sender: FDA-Public Use
  Company Number: CHWYE429425FEB06

PATIENT
  Age: 23 Year
  Sex: Female

DRUGS (2)
  1. EFFEXOR [Suspect]
     Indication: DEPRESSION
     Dosage: 150 MG 1X PER 1 DAY, ORAL/SEVERAL MONTHS
     Route: 048
  2. LEXOTANIL (BROMAZEPAM, , 0) [Suspect]
     Dosage: 1.5 MG 3X PER 1 DAY, ORAL/SEVERAL MONTHS
     Route: 048

REACTIONS (2)
  - ABORTION MISSED [None]
  - DRUG EXPOSURE DURING PREGNANCY [None]
